FAERS Safety Report 7919245-9 (Version None)
Quarter: 2011Q4

REPORT INFORMATION
  Report Type: 
  Country: None (occurrence: None)
  Receive Date: 20111114
  Receipt Date: 20111104
  Transmission Date: 20120403
  Serious: Yes (Hospitalization)
  Sender: FDA-Public Use
  Company Number: 2011P1009484

PATIENT
  Age: 63 Year
  Sex: Female
  Weight: 61.2356 kg

DRUGS (6)
  1. DEXTROAMPHETAMINE SACCHARATE, SUFATE/AMPHETAMINE ASPARTATE, SULFATE [Suspect]
     Indication: ATTENTION DEFICIT/HYPERACTIVITY DISORDER
     Dosage: 30 MG;TID;PO ; 30 MG;TID;PO ; 30 MG;TID;PO
     Route: 048
     Dates: start: 20110705
  2. DEXTROAMPHETAMINE SACCHARATE, SUFATE/AMPHETAMINE ASPARTATE, SULFATE [Suspect]
     Indication: ATTENTION DEFICIT/HYPERACTIVITY DISORDER
     Dosage: 30 MG;TID;PO ; 30 MG;TID;PO ; 30 MG;TID;PO
     Route: 048
     Dates: start: 20100401, end: 20110401
  3. DEXTROAMPHETAMINE SACCHARATE, SUFATE/AMPHETAMINE ASPARTATE, SULFATE [Suspect]
     Indication: ATTENTION DEFICIT/HYPERACTIVITY DISORDER
     Dosage: 30 MG;TID;PO ; 30 MG;TID;PO ; 30 MG;TID;PO
     Route: 048
     Dates: start: 20110401, end: 20110630
  4. ZOLOFT [Concomitant]
  5. AMPHETAMINE 30MG (BARR) (NO PREF. NAME) [Suspect]
     Indication: ATTENTION DEFICIT/HYPERACTIVITY DISORDER
     Dosage: TID
     Dates: start: 20110401, end: 20110401
  6. DIAZEPAM [Concomitant]

REACTIONS (8)
  - NAUSEA [None]
  - ADVERSE DRUG REACTION [None]
  - PRODUCT SUBSTITUTION ISSUE [None]
  - ASTHENIA [None]
  - DRUG INEFFECTIVE [None]
  - STRESS [None]
  - HYPOMANIA [None]
  - VERTIGO [None]
